FAERS Safety Report 13490099 (Version 1)
Quarter: 2017Q2

REPORT INFORMATION
  Report Type: Spontaneous
  Country: AU (occurrence: AU)
  Receive Date: 20170426
  Receipt Date: 20170426
  Transmission Date: 20170830
  Serious: Yes (Hospitalization, Other)
  Sender: FDA-Public Use
  Company Number: PHHY2017AU060665

PATIENT
  Age: 44 Year
  Sex: Male

DRUGS (1)
  1. OXALIPLATIN. [Suspect]
     Active Substance: OXALIPLATIN
     Indication: PSEUDOMYXOMA PERITONEI
     Route: 065

REACTIONS (2)
  - Chemical peritonitis [Recovered/Resolved]
  - Gastric perforation [Recovered/Resolved]
